FAERS Safety Report 4423844-9 (Version None)
Quarter: 2004Q3

REPORT INFORMATION
  Report Type: 
  Country: None (occurrence: None)
  Receive Date: 20040714
  Receipt Date: 20030528
  Transmission Date: 20050211
  Serious: Yes (Hospitalization)
  Sender: FDA-Public Use
  Company Number: 200314966US

PATIENT
  Age: 51 Year
  Sex: Female
  Weight: 69.6 kg

DRUGS (7)
  1. TAXOTERE [Suspect]
     Indication: BREAST CANCER METASTATIC
     Dosage: ~100 MG/M**2 Q3W
     Dates: start: 20030410, end: 20030410
  2. TAXOTERE [Suspect]
     Indication: BREAST CANCER METASTATIC
     Dates: start: 20030502, end: 20030502
  3. TAXOTERE [Suspect]
     Indication: BREAST CANCER METASTATIC
     Dosage: QW
     Dates: start: 20030509, end: 20030509
  4. DEXAMETHASONE [Concomitant]
  5. DOLASETRON [Concomitant]
  6. HYDROCHLOROTHIAZIDE [Concomitant]
  7. PREVACID [Concomitant]

REACTIONS (5)
  - BLISTER [None]
  - ERYTHEMA [None]
  - MUCOSAL INFLAMMATION [None]
  - RASH ERYTHEMATOUS [None]
  - STEVENS-JOHNSON SYNDROME [None]
